FAERS Safety Report 4302645-6 (Version None)
Quarter: 2004Q1

REPORT INFORMATION
  Report Type: 
  Country: None (occurrence: None)
  Receive Date: 20040223
  Receipt Date: 20040223
  Transmission Date: 20041129
  Serious: Yes (Hospitalization)
  Sender: FDA-Public Use
  Company Number: None

PATIENT
  Sex: Male
  Weight: 64.8 kg

DRUGS (5)
  1. AMANTADINE 50MG/5ML [Suspect]
     Indication: PARKINSON'S DISEASE
     Dosage: 100MG/10 ML BID ORAL
     Route: 048
     Dates: start: 20030116, end: 20040216
  2. TERAZOSIN HCL [Concomitant]
  3. SERTRALINE HCL [Concomitant]
  4. OLANZEPINE [Concomitant]
  5. LEVOTHYROXINE SODIUM [Concomitant]

REACTIONS (2)
  - FALL [None]
  - HALLUCINATION [None]
